FAERS Safety Report 5139859-1 (Version None)
Quarter: 2006Q4

REPORT INFORMATION
  Report Type: 
  Country: None (occurrence: None)
  Receive Date: 20061025
  Receipt Date: 20061025
  Transmission Date: 20070319
  Serious: Yes (Other)
  Sender: FDA-Public Use
  Company Number: None

PATIENT
  Age: 36 Year
  Sex: Female
  Weight: 74 kg

DRUGS (12)
  1. RITUXIMAB [Suspect]
     Indication: TRANSPLANT REJECTION
     Dosage: 600MG IV X 1 DOSE
     Route: 042
     Dates: start: 20060228
  2. SIROLIMUS [Concomitant]
  3. BIRTH CONTROL PILL [Concomitant]
  4. CALCIUM CARBONATE [Concomitant]
  5. GLUCOSAMINE [Concomitant]
  6. NIACIN [Concomitant]
  7. IRON POLYSACCHARIDE [Concomitant]
  8. FISH OIL [Concomitant]
  9. PROGRAF [Concomitant]
  10. ATENOLOL [Concomitant]
  11. VIT B COMPLEX [Concomitant]
  12. VIT C [Concomitant]

REACTIONS (3)
  - DRUG DOSE OMISSION [None]
  - INFUSION RELATED REACTION [None]
  - SNEEZING [None]
